FAERS Safety Report 10579737 (Version 2)
Quarter: 2015Q2

REPORT INFORMATION
  Report Type: Spontaneous
  Country: US (occurrence: US)
  Receive Date: 20141112
  Receipt Date: 20150427
  Transmission Date: 20150821
  Serious: Yes (Hospitalization, Other)
  Sender: FDA-Public Use
  Company Number: US-MERCK-1411USA005299

PATIENT
  Sex: Female
  Weight: 89.8 kg

DRUGS (1)
  1. JANUVIA [Suspect]
     Active Substance: SITAGLIPTIN PHOSPHATE
     Indication: TYPE 2 DIABETES MELLITUS
     Dosage: 100 MG, QD
     Route: 048
     Dates: start: 20100601, end: 20130108

REACTIONS (25)
  - Poor quality sleep [Unknown]
  - Hypertension [Unknown]
  - Adverse event [Unknown]
  - Cholecystitis chronic [Recovered/Resolved]
  - Diverticulum [Unknown]
  - Arthritis [Unknown]
  - Infectious mononucleosis [Unknown]
  - Endoscopy [Unknown]
  - Neutropenia [Unknown]
  - Vomiting [Recovering/Resolving]
  - Nocturia [Unknown]
  - Fibromyalgia [Unknown]
  - Back pain [Unknown]
  - Hypoaesthesia [Unknown]
  - Hysterectomy [Unknown]
  - Varicose vein operation [Unknown]
  - Nausea [Recovering/Resolving]
  - Pancreatic carcinoma metastatic [Unknown]
  - Metastases to peritoneum [Unknown]
  - Endoscopy [Unknown]
  - Cholecystectomy [Unknown]
  - Hypothyroidism [Unknown]
  - Urinary incontinence [Unknown]
  - Hyperlipidaemia [Unknown]
  - Abdominal pain [Unknown]

NARRATIVE: CASE EVENT DATE: 2010
